FAERS Safety Report 5537311-2 (Version None)
Quarter: 2007Q4

REPORT INFORMATION
  Report Type: 
  Country: None (occurrence: None)
  Receive Date: 20071207
  Receipt Date: 20071203
  Transmission Date: 20080405
  Serious: Yes (Life-Threatening)
  Sender: FDA-Public Use
  Company Number: JP-ASTRAZENECA-2007AP05824

PATIENT
  Age: 33 Year
  Sex: Male

DRUGS (2)
  1. CRESTOR [Suspect]
     Indication: HYPERCHOLESTEROLAEMIA
     Route: 048
     Dates: start: 20070829, end: 20070830
  2. DESMOPRESSIN [Concomitant]
     Indication: DIABETES INSIPIDUS
     Dosage: DOSE UNKNOWN
     Route: 065
     Dates: start: 19880101

REACTIONS (1)
  - WATER INTOXICATION [None]
